FAERS Safety Report 7906255 (Version 16)
Quarter: 2014Q1

REPORT INFORMATION
  Report Type: Spontaneous
  Country: US (occurrence: US)
  Receive Date: 20110420
  Receipt Date: 20140116
  Transmission Date: 20141002
  Serious: Yes (Life-Threatening, Other)
  Sender: FDA-Public Use
  Company Number: US-ASTRAZENECA-2010SE26184

PATIENT
  Age: 53 Year
  Sex: Male
  Weight: 80.7 kg

DRUGS (43)
  1. NEXIUM [Suspect]
     Indication: GASTRITIS
     Route: 048
     Dates: start: 20070423, end: 20110411
  2. NEXIUM [Suspect]
     Indication: GASTROOESOPHAGEAL REFLUX DISEASE
     Route: 048
     Dates: start: 20070423, end: 20110411
  3. NEXIUM [Suspect]
     Indication: GASTRITIS
     Route: 048
     Dates: start: 2008
  4. NEXIUM [Suspect]
     Indication: GASTROOESOPHAGEAL REFLUX DISEASE
     Route: 048
     Dates: start: 2008
  5. NEXIUM [Suspect]
     Indication: GASTRITIS
     Route: 048
     Dates: start: 2009
  6. NEXIUM [Suspect]
     Indication: GASTROOESOPHAGEAL REFLUX DISEASE
     Route: 048
     Dates: start: 2009
  7. PRILOSEC [Suspect]
     Indication: GASTROOESOPHAGEAL REFLUX DISEASE
     Route: 048
  8. PRILOSEC [Suspect]
     Indication: GASTRITIS
     Route: 048
  9. PRILOSEC [Suspect]
     Indication: GASTROOESOPHAGEAL REFLUX DISEASE
     Route: 048
  10. PRILOSEC [Suspect]
     Indication: GASTRITIS
     Route: 048
  11. PRILOSEC [Suspect]
     Indication: GASTROOESOPHAGEAL REFLUX DISEASE
     Route: 048
     Dates: start: 201311
  12. PRILOSEC [Suspect]
     Indication: GASTRITIS
     Route: 048
     Dates: start: 201311
  13. PRILOSEC OTC [Suspect]
     Indication: GASTRITIS
     Route: 048
  14. PRILOSEC OTC [Suspect]
     Indication: GASTRITIS
     Route: 048
     Dates: start: 201311
  15. PREVACID [Concomitant]
  16. DEPAKOTE [Concomitant]
  17. ZANTAC [Concomitant]
  18. AVAPRO [Concomitant]
  19. KLONOPIN [Concomitant]
     Indication: BIPOLAR I DISORDER
     Route: 048
     Dates: start: 1993
  20. EFFEXOR [Concomitant]
  21. LAMICTAL [Concomitant]
  22. ABILIFY [Concomitant]
  23. PROAIR [Concomitant]
     Dosage: TWO PUFFS
  24. LORATADINE [Concomitant]
     Route: 048
     Dates: start: 1998
  25. SUCRALFATE [Concomitant]
     Indication: GASTRIC DISORDER
     Route: 048
     Dates: start: 2005
  26. SIMVASTATIN [Concomitant]
     Indication: BLOOD CHOLESTEROL ABNORMAL
     Route: 048
     Dates: start: 2005
  27. PATANOL [Concomitant]
     Route: 047
  28. NAFTIFINE [Concomitant]
  29. OMEGA 3 [Concomitant]
  30. ACIPHEX [Concomitant]
  31. PROTONIX [Concomitant]
  32. ZEGERID [Concomitant]
  33. BUSPAR [Concomitant]
     Indication: BIPOLAR I DISORDER
     Route: 048
     Dates: start: 2003
  34. BELLADONNA [Concomitant]
     Indication: GASTRIC DISORDER
  35. LATUDA [Concomitant]
     Indication: MANIA
     Route: 048
     Dates: start: 2003
  36. LATUDA [Concomitant]
     Indication: BIPOLAR I DISORDER
     Route: 048
     Dates: start: 2003
  37. BUPOPRONOL [Concomitant]
  38. LOPROLINE [Concomitant]
     Indication: CARDIAC DISORDER
  39. LOPROLINE [Concomitant]
     Indication: BLOOD PRESSURE ABNORMAL
  40. AMLODIPINE [Concomitant]
     Indication: BLOOD PRESSURE ABNORMAL
     Route: 048
     Dates: start: 2010
  41. BENTYL [Concomitant]
     Indication: FLATULENCE
     Route: 048
     Dates: start: 201309
  42. BENTYL [Concomitant]
     Indication: MUSCLE SPASMS
     Route: 048
     Dates: start: 201309
  43. WELLBUTRIN [Concomitant]
     Indication: BIPOLAR I DISORDER
     Route: 048
     Dates: start: 2003

REACTIONS (30)
  - Respiratory failure [Unknown]
  - Blood pressure abnormal [Unknown]
  - Hypertension [Unknown]
  - Hyperchlorhydria [Unknown]
  - Gastrooesophageal reflux disease [Unknown]
  - Back disorder [Unknown]
  - Dizziness postural [Unknown]
  - Adverse drug reaction [Unknown]
  - Slow response to stimuli [Unknown]
  - Discomfort [Unknown]
  - Psychomotor hyperactivity [Unknown]
  - Irritable bowel syndrome [Unknown]
  - General physical health deterioration [Unknown]
  - Mania [Unknown]
  - Tachyphrenia [Unknown]
  - Gastric disorder [Unknown]
  - Adverse event [Unknown]
  - Activities of daily living impaired [Unknown]
  - Dyspepsia [Unknown]
  - Anxiety [Unknown]
  - Asthma [Unknown]
  - Visual impairment [Unknown]
  - Migraine [Unknown]
  - Headache [Unknown]
  - Malaise [Unknown]
  - Intentional drug misuse [Unknown]
  - Drug dose omission [Unknown]
  - Off label use [Unknown]
  - Drug ineffective [Unknown]
  - Drug effect decreased [Unknown]
